FAERS Safety Report 14927365 (Version 1)
Quarter: 2018Q2

REPORT INFORMATION
  Report Type: Spontaneous
  Country: JP (occurrence: JP)
  Receive Date: 20180523
  Receipt Date: 20180523
  Transmission Date: 20180711
  Serious: Yes (Hospitalization, Other)
  Sender: FDA-Public Use
  Company Number: PHHY2018JP002736

PATIENT
  Age: 74 Year
  Sex: Male

DRUGS (10)
  1. AMIODARONE [Suspect]
     Active Substance: AMIODARONE
     Indication: VENTRICULAR ARRHYTHMIA
     Dosage: 200 MG, QD
     Route: 065
  2. BISOPROLOL [Concomitant]
     Active Substance: BISOPROLOL
     Indication: VENTRICULAR ARRHYTHMIA
     Dosage: 2.5 MG, QD
     Route: 065
  3. AMIODARONE [Suspect]
     Active Substance: AMIODARONE
     Indication: VENTRICULAR TACHYCARDIA
  4. SPIRONOLACTONE. [Concomitant]
     Active Substance: SPIRONOLACTONE
     Indication: VENTRICULAR TACHYCARDIA
  5. BISOPROLOL [Concomitant]
     Active Substance: BISOPROLOL
     Indication: VENTRICULAR TACHYCARDIA
  6. SPIRONOLACTONE. [Concomitant]
     Active Substance: SPIRONOLACTONE
     Indication: VENTRICULAR ARRHYTHMIA
     Dosage: 25 MG, QD
     Route: 065
  7. LANSOPRAZOLE. [Concomitant]
     Active Substance: LANSOPRAZOLE
     Indication: VENTRICULAR ARRHYTHMIA
     Dosage: 15 MG, QD
     Route: 065
  8. LANSOPRAZOLE. [Concomitant]
     Active Substance: LANSOPRAZOLE
     Indication: VENTRICULAR TACHYCARDIA
  9. ENALAPRIL [Concomitant]
     Active Substance: ENALAPRIL
     Indication: VENTRICULAR TACHYCARDIA
  10. ENALAPRIL [Concomitant]
     Active Substance: ENALAPRIL
     Indication: VENTRICULAR ARRHYTHMIA
     Dosage: 5 MG, QD
     Route: 065

REACTIONS (2)
  - Hepatotoxicity [Recovered/Resolved]
  - Steatohepatitis [Unknown]
